FAERS Safety Report 20512342 (Version 2)
Quarter: 2022Q1

REPORT INFORMATION
  Report Type: Spontaneous
  Country: RO (occurrence: RO)
  Receive Date: 20220224
  Receipt Date: 20220315
  Transmission Date: 20220423
  Serious: Yes (Hospitalization, Other)
  Sender: FDA-Public Use
  Company Number: RO-ROCHE-3021587

PATIENT
  Age: 74 Year
  Sex: Female

DRUGS (9)
  1. HYDROCORTISONE [Suspect]
     Active Substance: HYDROCORTISONE
     Indication: Product used for unknown indication
     Route: 065
  2. GAZYVA [Suspect]
     Active Substance: OBINUTUZUMAB
     Indication: Product used for unknown indication
     Route: 042
  3. GAZYVA [Suspect]
     Active Substance: OBINUTUZUMAB
     Dosage: D1, 8, 15 - OBINUTUZUMAB 1000 MG/DAY
     Route: 042
     Dates: start: 20200518
  4. GAZYVA [Suspect]
     Active Substance: OBINUTUZUMAB
     Dosage: 7 MAINTENANCE COURSES
     Route: 042
     Dates: start: 202102, end: 202201
  5. GAZYVA [Suspect]
     Active Substance: OBINUTUZUMAB
     Dosage: 2 CYCLES WITH OBINUTUZUMAB MONOTHERAPY
     Route: 042
     Dates: end: 202010
  6. PREDNISONE [Suspect]
     Active Substance: PREDNISONE
     Indication: Product used for unknown indication
     Route: 065
  7. CYCLOPHOSPHAMIDE [Suspect]
     Active Substance: CYCLOPHOSPHAMIDE
     Indication: Product used for unknown indication
     Route: 065
  8. OXALIPLATIN [Suspect]
     Active Substance: OXALIPLATIN
     Indication: Product used for unknown indication
     Route: 065
  9. DOXORUBICIN [Concomitant]
     Active Substance: DOXORUBICIN
     Indication: Product used for unknown indication
     Route: 065

REACTIONS (8)
  - COVID-19 [Unknown]
  - Pneumonia [Unknown]
  - Lymphadenopathy [Unknown]
  - Gastrectomy [Unknown]
  - Hepatomegaly [Unknown]
  - Peripheral venous disease [Unknown]
  - Cardiac failure chronic [Unknown]
  - Weight increased [Unknown]

NARRATIVE: CASE EVENT DATE: 20211001
